FAERS Safety Report 23472482 (Version 1)
Quarter: 2024Q1

REPORT INFORMATION
  Report Type: Spontaneous
  Country: CN (occurrence: CN)
  Receive Date: 20240202
  Receipt Date: 20240202
  Transmission Date: 20240409
  Serious: Yes (Other)
  Sender: FDA-Public Use
  Company Number: CN-BAYER-2024A019022

PATIENT
  Age: 41 Year
  Sex: Female
  Weight: 54 kg

DRUGS (2)
  1. ULTRAVIST [Suspect]
     Active Substance: IOPROMIDE
     Indication: Computerised tomogram heart
     Dosage: 50 ML, ONCE, WITH 70 ML NORMAL SALINE BY HIGH PRESSURE SYRINGE
     Route: 040
     Dates: start: 20240124, end: 20240124
  2. ULTRAVIST [Suspect]
     Active Substance: IOPROMIDE
     Indication: Chest pain

REACTIONS (10)
  - Laryngeal discomfort [Recovering/Resolving]
  - Nasal obstruction [Recovering/Resolving]
  - Eyelid oedema [Recovering/Resolving]
  - Rash pruritic [Recovering/Resolving]
  - Hypoacusis [Recovered/Resolved]
  - Flushing [Recovering/Resolving]
  - Conjunctival hyperaemia [Recovering/Resolving]
  - Conjunctivitis [Recovering/Resolving]
  - Dysphonia [Recovering/Resolving]
  - Sinus arrhythmia [None]

NARRATIVE: CASE EVENT DATE: 20240124
